FAERS Safety Report 23980689 (Version 2)
Quarter: 2025Q1

REPORT INFORMATION
  Report Type: Spontaneous
  Country: CA (occurrence: CA)
  Receive Date: 20240617
  Receipt Date: 20250203
  Transmission Date: 20250409
  Serious: Yes (Other)
  Sender: TAKEDA
  Company Number: CA-TAKEDA-2024TUS058977

PATIENT
  Age: 60 Year
  Sex: Male
  Weight: 126 kg

DRUGS (12)
  1. HUMAN IMMUNOGLOBULIN G [Suspect]
     Active Substance: HUMAN IMMUNOGLOBULIN G
     Indication: Product used for unknown indication
  2. HIZENTRA [Suspect]
     Active Substance: HUMAN IMMUNOGLOBULIN G
     Indication: Chronic inflammatory demyelinating polyradiculoneuropathy
     Dosage: 25 GRAM, 1/WEEK
     Dates: start: 20231218
  3. ALLOPURINOL [Concomitant]
     Active Substance: ALLOPURINOL
  4. ASPIRIN [Concomitant]
     Active Substance: ASPIRIN
  5. BASAGLAR [Concomitant]
     Active Substance: INSULIN GLARGINE
  6. DICLOFENAC [Concomitant]
     Active Substance: DICLOFENAC
  7. JARDIANCE [Concomitant]
     Active Substance: EMPAGLIFLOZIN
  8. LANTUS [Concomitant]
     Active Substance: INSULIN GLARGINE
  9. LIPITOR [Concomitant]
     Active Substance: ATORVASTATIN CALCIUM
  10. METFORMIN [Concomitant]
     Active Substance: METFORMIN HYDROCHLORIDE
  11. NOVORAPID [Concomitant]
     Active Substance: INSULIN ASPART
  12. RAMIPRIL [Concomitant]
     Active Substance: RAMIPRIL

REACTIONS (5)
  - Drug ineffective [Unknown]
  - Chronic inflammatory demyelinating polyradiculoneuropathy [Unknown]
  - Somnolence [Unknown]
  - Mobility decreased [Unknown]
  - Asthenia [Unknown]
